FAERS Safety Report 5756011-7 (Version None)
Quarter: 2008Q2

REPORT INFORMATION
  Report Type: 
  Country: None (occurrence: None)
  Receive Date: 20080602
  Receipt Date: 20080507
  Transmission Date: 20081010
  Serious: No
  Sender: FDA-Public Use
  Company Number: US-ABBOTT-08P-163-0451301-00

PATIENT
  Sex: Female
  Weight: 53.572 kg

DRUGS (6)
  1. ZEMPLAR [Suspect]
     Indication: VITAMIN SUPPLEMENTATION
     Route: 048
     Dates: start: 20040101, end: 20080501
  2. LICRICA [Concomitant]
     Indication: PAIN
     Route: 048
     Dates: start: 20070901
  3. ESTRADIOL [Concomitant]
     Indication: HORMONE THERAPY
     Dosage: PATCH, 1 IN 1 W
     Dates: start: 20000101
  4. LIDOCAINE [Concomitant]
     Indication: PAIN
     Dosage: 2 PATCHES, 1 IN 1 D
     Dates: start: 20040101
  5. SERTRALINE [Concomitant]
     Indication: DEPRESSION
     Route: 048
     Dates: start: 20010101
  6. HYDROXYCHLOROQUINE SULFATE [Concomitant]
     Indication: ARTHRITIS
     Route: 048
     Dates: start: 19980101

REACTIONS (2)
  - NAIL DISORDER [None]
  - ONYCHOCLASIS [None]
